FAERS Safety Report 24412988 (Version 5)
Quarter: 2024Q4

REPORT INFORMATION
  Report Type: Report from Study
  Country: NL (occurrence: NL)
  Receive Date: 20241008
  Receipt Date: 20241220
  Transmission Date: 20250115
  Serious: Yes (Other)
  Sender: ABBVIE
  Company Number: NL-ABBVIE-5859523

PATIENT
  Age: 75 Year
  Sex: Female

DRUGS (14)
  1. CARBIDOPA\LEVODOPA [Suspect]
     Active Substance: CARBIDOPA\LEVODOPA
     Indication: Parkinson^s disease
     Dosage: PERCUTANEOUS J-TUBE ?MD: 4.6ML, CD: 4.6ML/H, ED: 1.7ML, END: 1.0ML, CND: 4.0ML/H
     Route: 050
     Dates: start: 20240829, end: 20240916
  2. CARBIDOPA\LEVODOPA [Suspect]
     Active Substance: CARBIDOPA\LEVODOPA
     Dosage: PERCUTANEOUS J-TUBE
     Route: 050
     Dates: start: 20201005
  3. CARBIDOPA\LEVODOPA [Suspect]
     Active Substance: CARBIDOPA\LEVODOPA
     Dosage: PERCUTANEOUS J-TUBE ?MD: 0.0ML, END: 1.0ML, CND: 3.8ML/H
     Route: 050
     Dates: start: 20240516, end: 20240829
  4. CARBIDOPA\LEVODOPA [Suspect]
     Active Substance: CARBIDOPA\LEVODOPA
     Dosage: PERCUTANEOUS J-TUBE ?MD: 4.2ML, CD: 4.6ML/H, ED: 1.4ML
     Route: 050
     Dates: start: 20240916
  5. CARBIDOPA\LEVODOPA [Suspect]
     Active Substance: CARBIDOPA\LEVODOPA
     Indication: Parkinson^s disease
     Dosage: MD: 4.2ML, CD: 4.6ML/H, ED: 1.4ML
     Route: 058
     Dates: start: 20240916
  6. CARBIDOPA\LEVODOPA [Suspect]
     Active Substance: CARBIDOPA\LEVODOPA
     Dosage: LOAD. D.:0.0ML, BIF:0.53 ML/H, HIF:0.53 ML/H, LIF: 0.35 ML/H, ED:0.2 ML; REMAINS AT 24 HOURS
     Route: 058
     Dates: start: 20240701, end: 20240723
  7. CARBIDOPA\LEVODOPA [Suspect]
     Active Substance: CARBIDOPA\LEVODOPA
     Dosage: MD: 4.6ML, CD: 4.6ML/H, ED: 1.7ML, END: 1.0ML, CND: 4.0ML/H
     Route: 058
     Dates: start: 20240829, end: 20240916
  8. CARBIDOPA\LEVODOPA [Suspect]
     Active Substance: CARBIDOPA\LEVODOPA
     Dosage: BIF:0.54 ML/H, HIF:0.54 ML/H, LIF: 0.35 ML/H, ED:0.2 ML;REMAINS AT 24 HOURS
     Route: 058
     Dates: start: 20240723, end: 20240822
  9. CARBIDOPA\LEVODOPA [Suspect]
     Active Substance: CARBIDOPA\LEVODOPA
     Dosage: MD: 0.0ML, END: 1.0ML, CND: 3.8ML/H
     Dates: start: 20240516, end: 20240829
  10. CARBIDOPA\LEVODOPA [Suspect]
     Active Substance: CARBIDOPA\LEVODOPA
     Route: 058
     Dates: start: 20201005
  11. BOTOX [Suspect]
     Active Substance: ONABOTULINUMTOXINA
     Indication: Product used for unknown indication
     Dosage: TIME INTERVAL: AS NECESSARY: 50 U, EVERY 2-3 MONTHS
     Route: 065
  12. ROPINIROLE [Concomitant]
     Active Substance: ROPINIROLE
     Indication: Parkinson^s disease
     Route: 048
  13. Weed Oil [Concomitant]
     Indication: Parkinson^s disease
     Route: 048
  14. Weed Oil [Concomitant]
     Indication: Parkinson^s disease
     Dosage: AT DISCRETION FOR DYSKINESIA
     Route: 048

REACTIONS (29)
  - Road traffic accident [Recovered/Resolved with Sequelae]
  - Skin disorder [Not Recovered/Not Resolved]
  - Mobility decreased [Not Recovered/Not Resolved]
  - Hallucination [Not Recovered/Not Resolved]
  - Pain in extremity [Not Recovered/Not Resolved]
  - Infusion site erythema [Not Recovered/Not Resolved]
  - Dysstasia [Not Recovered/Not Resolved]
  - Parkinson^s disease [Not Recovered/Not Resolved]
  - Infusion site discharge [Not Recovered/Not Resolved]
  - Purulent discharge [Not Recovered/Not Resolved]
  - Infusion site bruising [Not Recovered/Not Resolved]
  - Blood pressure abnormal [Unknown]
  - Pain in extremity [Not Recovered/Not Resolved]
  - Infusion site inflammation [Not Recovered/Not Resolved]
  - On and off phenomenon [Not Recovered/Not Resolved]
  - Gastrointestinal disorder [Not Recovered/Not Resolved]
  - Infusion site induration [Not Recovered/Not Resolved]
  - Malaise [Not Recovered/Not Resolved]
  - Gait disturbance [Not Recovered/Not Resolved]
  - Musculoskeletal stiffness [Not Recovered/Not Resolved]
  - Device use error [Not Recovered/Not Resolved]
  - Dyskinesia [Not Recovered/Not Resolved]
  - Hyperkinesia [Not Recovered/Not Resolved]
  - Unevaluable event [Not Recovered/Not Resolved]
  - Catheter site pain [Not Recovered/Not Resolved]
  - Stoma site reaction [Not Recovered/Not Resolved]
  - Stoma site infection [Unknown]
  - Pain in extremity [Not Recovered/Not Resolved]
  - On and off phenomenon [Not Recovered/Not Resolved]

NARRATIVE: CASE EVENT DATE: 20240101
